FAERS Safety Report 5225619-X (Version None)
Quarter: 2007Q1

REPORT INFORMATION
  Report Type: 
  Country: None (occurrence: None)
  Receive Date: 20061201
  Receipt Date: 20060912
  Transmission Date: 20070707
  Serious: No
  Sender: FDA-Public Use
  Company Number: US200609002869

PATIENT
  Age: 24 Year
  Sex: Male

DRUGS (3)
  1. CYMBALTA [Suspect]
     Dosage: SEE IMAGE
  2. TRAMADOL HCL [Concomitant]
  3. FLUOXETINE [Concomitant]

REACTIONS (1)
  - PROSTATE EXAMINATION ABNORMAL [None]
